FAERS Safety Report 6568352-4 (Version None)
Quarter: 2010Q1

REPORT INFORMATION
  Report Type: 
  Country: None (occurrence: None)
  Receive Date: 20100128
  Receipt Date: 20100114
  Transmission Date: 20100710
  Serious: Yes (Life-Threatening, Other)
  Sender: FDA-Public Use
  Company Number: 002834

PATIENT
  Sex: Male
  Weight: 51.7 kg

DRUGS (6)
  1. KEPPRA [Suspect]
     Indication: EPILEPSY
     Dosage: DAILY 4 TABLET; SINGLE DOSE; 2 TABLETS ORAL
     Route: 048
     Dates: start: 20031001
  2. KEPPRA [Suspect]
     Indication: STURGE-WEBER SYNDROME
     Dosage: DAILY 4 TABLET; SINGLE DOSE; 2 TABLETS ORAL
     Route: 048
     Dates: start: 20031001
  3. PHENHYDAN [Concomitant]
  4. FRISIUM [Concomitant]
  5. CITALOPRAM HYDROBROMIDE [Concomitant]
  6. DIAMOX SRC [Concomitant]

REACTIONS (4)
  - APATHY [None]
  - FATIGUE [None]
  - IMPULSIVE BEHAVIOUR [None]
  - WEIGHT DECREASED [None]
